FAERS Safety Report 14532005 (Version 3)
Quarter: 2018Q3

REPORT INFORMATION
  Report Type: Spontaneous
  Country: FR (occurrence: FR)
  Receive Date: 20180214
  Receipt Date: 20180725
  Transmission Date: 20181010
  Serious: Yes (Hospitalization)
  Sender: FDA-Public Use
  Company Number: FR-ALLERGAN-1806967US

PATIENT
  Age: 59 Year
  Sex: Female

DRUGS (2)
  1. QIZENDAY [Suspect]
     Active Substance: BIOTIN
     Indication: PROGRESSIVE MULTIPLE SCLEROSIS
     Dosage: 300 MG, UNK
     Route: 048
     Dates: start: 201707, end: 20171229
  2. ESCITALOPRAM OXALATE ? BP [Suspect]
     Active Substance: ESCITALOPRAM OXALATE
     Indication: PRODUCT USED FOR UNKNOWN INDICATION
     Dosage: 15 MG, UNK
     Route: 048
     Dates: start: 201706, end: 20180102

REACTIONS (4)
  - Frontotemporal dementia [Recovered/Resolved]
  - Disorientation [Recovered/Resolved]
  - Cystitis [Recovered/Resolved]
  - Confusional state [Recovered/Resolved]

NARRATIVE: CASE EVENT DATE: 20171225
